FAERS Safety Report 19847252 (Version 1)
Quarter: 2021Q3

REPORT INFORMATION
  Report Type: Spontaneous
  Country: DE (occurrence: DE)
  Receive Date: 20210917
  Receipt Date: 20210917
  Transmission Date: 20211014
  Serious: Yes (Other)
  Sender: FDA-Public Use
  Company Number: DE-TEVA-2021-DE-1953438

PATIENT
  Sex: Male

DRUGS (1)
  1. RISPERIDON?RATIOPHARM [Suspect]
     Active Substance: RISPERIDONE
     Route: 065

REACTIONS (3)
  - Sedation [Unknown]
  - Delirium [Unknown]
  - Confusional state [Unknown]
